FAERS Safety Report 6719682-4 (Version None)
Quarter: 2010Q2

REPORT INFORMATION
  Report Type: 
  Country: None (occurrence: None)
  Receive Date: 20100510
  Receipt Date: 20100510
  Transmission Date: 20101027
  Serious: Yes (Life-Threatening, Hospitalization)
  Sender: FDA-Public Use
  Company Number: None

PATIENT
  Age: 63 Year
  Sex: Female
  Weight: 71.4 kg

DRUGS (8)
  1. LENALIDOMIDE [Suspect]
     Indication: HODGKIN'S DISEASE
     Dosage: 25 MG QD PO
     Route: 048
     Dates: start: 20100401, end: 20100425
  2. ONDANSETRON [Concomitant]
  3. PANTOPRAZOLE [Concomitant]
  4. FUROSEMIDE [Concomitant]
  5. LACTULOSE PO [Concomitant]
  6. OXYCODONE CR [Concomitant]
  7. LEVOTHYROXINE SODIUM [Concomitant]
  8. SPIRONOLACTONE [Concomitant]

REACTIONS (2)
  - DEEP VEIN THROMBOSIS [None]
  - PULMONARY EMBOLISM [None]
